FAERS Safety Report 11677372 (Version 1)
Quarter: 2015Q4

REPORT INFORMATION
  Report Type: Spontaneous
  Country: FR (occurrence: FR)
  Receive Date: 20151028
  Receipt Date: 20151028
  Transmission Date: 20160304
  Serious: Yes (Other)
  Sender: FDA-Public Use
  Company Number: PHHY2015FR138229

PATIENT
  Age: 16 Year
  Sex: Female

DRUGS (6)
  1. NEFOPAM [Suspect]
     Active Substance: NEFOPAM
     Indication: ANALGESIC THERAPY
     Dosage: 20 MG, UNK
     Route: 065
  2. MORPHINE [Suspect]
     Active Substance: MORPHINE
     Indication: ANALGESIC THERAPY
     Dosage: 0.1 MG/KG, UNK
     Route: 042
  3. MORPHINE [Suspect]
     Active Substance: MORPHINE
     Dosage: 3 MG, EVERY 5 MINUTES.
  4. PARACETAMOL [Suspect]
     Active Substance: ACETAMINOPHEN
     Indication: ANALGESIC THERAPY
     Dosage: 1 G, UNK
     Route: 042
  5. MORPHINE [Suspect]
     Active Substance: MORPHINE
     Dosage: 9 MG, UNK
  6. TRAMADOL. [Suspect]
     Active Substance: TRAMADOL
     Indication: ANALGESIC THERAPY
     Dosage: 100 MG, UNK
     Route: 042

REACTIONS (1)
  - Drug ineffective [Unknown]
